FAERS Safety Report 21345389 (Version 1)
Quarter: 2022Q3

REPORT INFORMATION
  Report Type: Spontaneous
  Country: None (occurrence: US)
  Receive Date: 20220916
  Receipt Date: 20220916
  Transmission Date: 20221027
  Serious: Yes (Death)
  Sender: FDA-Public Use
  Company Number: US-Vero Biotech-2132944

PATIENT
  Sex: Male

DRUGS (2)
  1. GENOSYL [Suspect]
     Active Substance: NITRIC OXIDE
     Indication: Hydrops foetalis
     Route: 055
     Dates: start: 20220821, end: 20220830
  2. GENOSYL [Suspect]
     Active Substance: NITRIC OXIDE

REACTIONS (1)
  - Cardiac failure [Fatal]
